FAERS Safety Report 21569577 (Version 8)
Quarter: 2023Q1

REPORT INFORMATION
  Report Type: Report from Study
  Country: US (occurrence: US)
  Receive Date: 20221109
  Receipt Date: 20230109
  Transmission Date: 20230417
  Serious: Yes (Hospitalization)
  Sender: FDA-Public Use
  Company Number: US-JNJFOC-20221101262

PATIENT
  Age: 58 Year
  Sex: Female
  Weight: 84.1 kg

DRUGS (5)
  1. EPOPROSTENOL SODIUM [Suspect]
     Active Substance: EPOPROSTENOL SODIUM
     Indication: Pulmonary arterial hypertension
     Route: 042
  2. AMBRISENTAN [Concomitant]
     Active Substance: AMBRISENTAN
  3. ADEMPAS [Concomitant]
     Active Substance: RIOCIGUAT
  4. VELETRI [Concomitant]
     Active Substance: EPOPROSTENOL
  5. ELIQUIS [Concomitant]
     Active Substance: APIXABAN

REACTIONS (4)
  - Pneumonia respiratory syncytial viral [Unknown]
  - Device occlusion [Not Recovered/Not Resolved]
  - Underdose [Unknown]
  - Gastroenteritis viral [Unknown]

NARRATIVE: CASE EVENT DATE: 20221028
